FAERS Safety Report 6804107-0 (Version None)
Quarter: 2010Q2

REPORT INFORMATION
  Report Type: 
  Country: None (occurrence: None)
  Receive Date: 20100628
  Receipt Date: 20070523
  Transmission Date: 20101027
  Serious: No
  Sender: FDA-Public Use
  Company Number: US-PFIZER INC-2005147654

PATIENT
  Sex: Female
  Weight: 67.13 kg

DRUGS (2)
  1. XALATAN [Suspect]
     Indication: GLAUCOMA
     Dosage: 1 DROP RIGHT EYE
     Route: 047
  2. SYNTHROID [Concomitant]
     Indication: ILL-DEFINED DISORDER
     Route: 065

REACTIONS (2)
  - DRUG ADMINISTRATION ERROR [None]
  - MEMORY IMPAIRMENT [None]
